FAERS Safety Report 12613585 (Version 2)
Quarter: 2016Q4

REPORT INFORMATION
  Report Type: Spontaneous
  Country: JP (occurrence: JP)
  Receive Date: 20160802
  Receipt Date: 20161007
  Transmission Date: 20170207
  Serious: Yes (Other)
  Sender: FDA-Public Use
  Company Number: JP-AMGEN-JPNSP2016099022

PATIENT
  Age: 86 Year
  Sex: Female

DRUGS (1)
  1. RANMARK [Suspect]
     Active Substance: DENOSUMAB
     Indication: CHORDOMA
     Dosage: UNK
     Route: 065
     Dates: start: 20140430, end: 201505

REACTIONS (1)
  - Osteonecrosis of jaw [Not Recovered/Not Resolved]
